FAERS Safety Report 9265251 (Version 4)
Quarter: 2013Q3

REPORT INFORMATION
  Report Type: Spontaneous
  Country: JP (occurrence: JP)
  Receive Date: 20130501
  Receipt Date: 20130702
  Transmission Date: 20140515
  Serious: Yes (Hospitalization)
  Sender: FDA-Public Use
  Company Number: JP-SANOFI-AVENTIS-2013SA043843

PATIENT
  Age: 74 Year
  Sex: Female
  Weight: 44.8 kg

DRUGS (24)
  1. MYSLEE [Suspect]
     Indication: INSOMNIA
     Route: 048
     Dates: end: 20130228
  2. SYMBICORT [Concomitant]
     Indication: EMPHYSEMA
     Dosage: FORM: INHALATION?ROUTE: RESPIRATORY
     Route: 055
  3. MEVALOTIN [Concomitant]
     Indication: HYPERCHOLESTEROLAEMIA
     Route: 048
     Dates: end: 20130228
  4. ALOSENN [Concomitant]
     Indication: CONSTIPATION
     Dates: start: 20130228
  5. MUCODYNE [Concomitant]
     Route: 048
  6. GASMOTIN [Concomitant]
     Route: 048
  7. CLARITHROMYCIN [Concomitant]
     Route: 048
  8. DEPAS [Concomitant]
     Route: 048
  9. FLUTICASONE PROPIONATE/SALMETEROL XINAFOATE [Concomitant]
     Indication: CHRONIC OBSTRUCTIVE PULMONARY DISEASE
     Dosage: INHALATION
     Route: 055
  10. OMEPRAL [Concomitant]
     Indication: GASTROOESOPHAGEAL REFLUX DISEASE
     Dosage: ENTERIC FORM
  11. RIZE [Concomitant]
     Indication: INSOMNIA
     Route: 048
     Dates: end: 20130228
  12. BISOLVON [Concomitant]
     Indication: EMPHYSEMA
     Route: 048
     Dates: end: 20130228
  13. METHISTA [Concomitant]
     Indication: EMPHYSEMA
     Route: 048
     Dates: end: 20130228
  14. LORCAM [Concomitant]
     Dates: end: 20130228
  15. ADETPHOS [Concomitant]
     Route: 048
  16. MECOBALAMIN [Concomitant]
     Route: 048
  17. PURSENNID [Concomitant]
     Indication: CONSTIPATION
     Dates: end: 20130228
  18. GASMOTIN [Concomitant]
     Route: 048
     Dates: end: 20130228
  19. ZOLPIDEM TARTRATE [Concomitant]
     Indication: INSOMNIA
     Route: 048
     Dates: start: 20130228
  20. PRAVASTATIN SODIUM [Concomitant]
     Indication: HYPERCHOLESTEROLAEMIA
     Dates: start: 20130228
  21. DEPAS [Concomitant]
     Indication: INSOMNIA
     Route: 048
     Dates: start: 20130228
  22. MOSAPRIDE CITRATE [Concomitant]
     Route: 048
     Dates: start: 20130228
  23. ADOAIR [Concomitant]
     Indication: EMPHYSEMA
     Route: 055
  24. ANAESTHETICS, GENERAL [Concomitant]

REACTIONS (1)
  - Femoral neck fracture [Recovering/Resolving]
